FAERS Safety Report 5456582-4 (Version None)
Quarter: 2007Q3

REPORT INFORMATION
  Report Type: 
  Country: None (occurrence: None)
  Receive Date: 20070918
  Receipt Date: 20070330
  Transmission Date: 20080115
  Serious: Yes (Hospitalization)
  Sender: FDA-Public Use
  Company Number: US-ASTRAZENECA-2006UW25383

PATIENT
  Sex: Male
  Weight: 104.5 kg

DRUGS (3)
  1. SEROQUEL [Suspect]
     Indication: BIPOLAR DISORDER
     Dosage: 100MG-200MG
     Route: 048
     Dates: start: 20031201, end: 20041001
  2. RISPERDAL [Concomitant]
     Dates: start: 19990101
  3. ZYPREXA [Concomitant]

REACTIONS (3)
  - DIABETES MELLITUS [None]
  - SUICIDE ATTEMPT [None]
  - WEIGHT INCREASED [None]
